FAERS Safety Report 12901397 (Version 1)
Quarter: 2016Q4

REPORT INFORMATION
  Report Type: Spontaneous
  Country: US (occurrence: US)
  Receive Date: 20161101
  Receipt Date: 20161101
  Transmission Date: 20170207
  Serious: No
  Sender: FDA-Public Use
  Company Number: US-ASTRAZENECA-2016SF11102

PATIENT
  Sex: Female

DRUGS (1)
  1. LYNPARZA [Suspect]
     Active Substance: OLAPARIB
     Route: 048

REACTIONS (7)
  - Insomnia [Unknown]
  - Fatigue [Unknown]
  - Nightmare [Unknown]
  - Muscle spasms [Unknown]
  - Headache [Unknown]
  - Malaise [Unknown]
  - Renal impairment [Unknown]
